FAERS Safety Report 14124175 (Version 3)
Quarter: 2018Q1

REPORT INFORMATION
  Report Type: Report from Study
  Country: US (occurrence: US)
  Receive Date: 20171025
  Receipt Date: 20180328
  Transmission Date: 20180508
  Serious: No
  Sender: FDA-Public Use
  Company Number: PHEH2017US034454

PATIENT
  Sex: Male
  Weight: 61.23 kg

DRUGS (1)
  1. OMNITROPE [Suspect]
     Active Substance: SOMATROPIN
     Indication: HYPOPITUITARISM
     Dosage: 0.45 MG, QD X 7 DAYS/WEEK
     Route: 058
     Dates: start: 201704

REACTIONS (1)
  - Incorrect dose administered by device [Not Recovered/Not Resolved]
